FAERS Safety Report 7571865-X (Version None)
Quarter: 2011Q2

REPORT INFORMATION
  Report Type: 
  Country: None (occurrence: None)
  Receive Date: 20110624
  Receipt Date: 20100505
  Transmission Date: 20111010
  Serious: No
  Sender: FDA-Public Use
  Company Number: A0858408A

PATIENT
  Age: 82 Year
  Sex: Female

DRUGS (6)
  1. VERAMYST [Suspect]
     Dosage: 1SPR IN THE MORNING
     Route: 045
     Dates: start: 20100326
  2. VITAMIN TAB [Concomitant]
  3. THYROXIN [Concomitant]
  4. PREVACID [Concomitant]
  5. LOVASTATIN [Concomitant]
  6. NORVASC [Concomitant]

REACTIONS (2)
  - RHINITIS [None]
  - EPISTAXIS [None]
